FAERS Safety Report 9188179 (Version 1)
Quarter: 2013Q1

REPORT INFORMATION
  Report Type: Spontaneous
  Country: ES (occurrence: ES)
  Receive Date: 20130325
  Receipt Date: 20130325
  Transmission Date: 20140127
  Serious: Yes (Other)
  Sender: FDA-Public Use
  Company Number: PHHY2013ES025374

PATIENT
  Age: 89 Year
  Sex: 0

DRUGS (7)
  1. LETROZOLE [Suspect]
     Indication: BREAST CANCER
     Dosage: 2.5 MG DAILY
     Route: 048
     Dates: end: 20130121
  2. KENESIL [Concomitant]
     Dosage: UNK UKN, UNK
  3. EMCONCOR COR [Concomitant]
     Dosage: 5 MG, UNK
  4. ZEMPLAR [Concomitant]
     Dosage: 1 UG, UNK
  5. IRBESARTAN [Concomitant]
     Dosage: UNK UKN, UNK
  6. FUROSEMIDE [Concomitant]
     Dosage: UNK UKN, UNK
  7. SINTROM [Concomitant]
     Dosage: 1 MG, UNK

REACTIONS (2)
  - Pleural effusion [Recovered/Resolved]
  - Dyspnoea [Recovered/Resolved]
